FAERS Safety Report 17651807 (Version 2)
Quarter: 2021Q1

REPORT INFORMATION
  Report Type: Report from Study
  Country: US (occurrence: US)
  Receive Date: 20200409
  Receipt Date: 20210210
  Transmission Date: 20210419
  Serious: No
  Sender: FDA-Public Use
  Company Number: NVSC2020US095349

PATIENT
  Sex: Male

DRUGS (2)
  1. MAYZENT [Suspect]
     Active Substance: SIPONIMOD
     Indication: RELAPSING-REMITTING MULTIPLE SCLEROSIS
     Dosage: 2 MG, QD
     Route: 048
     Dates: start: 20190709
  2. MAYZENT [Suspect]
     Active Substance: SIPONIMOD
     Indication: LIMB DEFORMITY

REACTIONS (3)
  - Urinary incontinence [Unknown]
  - Limb deformity [Unknown]
  - Product dose omission issue [Unknown]
